FAERS Safety Report 6923635-0 (Version None)
Quarter: 2010Q3

REPORT INFORMATION
  Report Type: 
  Country: None (occurrence: None)
  Receive Date: 20100813
  Receipt Date: 20100805
  Transmission Date: 20110219
  Serious: Yes (Other)
  Sender: FDA-Public Use
  Company Number: A0875626A

PATIENT
  Age: 56 Year
  Sex: Female

DRUGS (2)
  1. AVANDIA [Suspect]
     Dosage: 2MG PER DAY
     Route: 048
     Dates: start: 20060101, end: 20070401
  2. AVANDAMET [Suspect]
     Route: 048
     Dates: start: 20020101, end: 20060101

REACTIONS (1)
  - CEREBROVASCULAR ACCIDENT [None]
